FAERS Safety Report 20214014 (Version 1)
Quarter: 2021Q4

REPORT INFORMATION
  Report Type: Spontaneous
  Country: CA (occurrence: CA)
  Receive Date: 20211221
  Receipt Date: 20211221
  Transmission Date: 20220304
  Serious: Yes (Other)
  Sender: FDA-Public Use
  Company Number: CA-ZO SKIN HEALTH-2021ZOS00030

PATIENT
  Age: 19 Year
  Sex: Female

DRUGS (1)
  1. TRETINOIN [Suspect]
     Active Substance: TRETINOIN
     Indication: Acne
     Dosage: 10 APPLICATIONS
     Route: 061

REACTIONS (1)
  - Optic disc disorder [Recovered/Resolved]
